FAERS Safety Report 4780105-6 (Version None)
Quarter: 2005Q3

REPORT INFORMATION
  Report Type: 
  Country: None (occurrence: None)
  Receive Date: 20050927
  Receipt Date: 20050801
  Transmission Date: 20060218
  Serious: Yes (Hospitalization)
  Sender: FDA-Public Use
  Company Number: US-MERCK-0508USA00534

PATIENT
  Age: 37 Year
  Sex: Female
  Weight: 89 kg

DRUGS (2)
  1. VIOXX [Suspect]
     Indication: ARTHRALGIA
     Route: 048
     Dates: start: 20000815
  2. VIOXX [Suspect]
     Route: 048
     Dates: start: 20000815

REACTIONS (7)
  - ANGINA PECTORIS [None]
  - CARDIAC DISORDER [None]
  - CHEST PAIN [None]
  - CORONARY ARTERY OCCLUSION [None]
  - DRUG EXPOSURE DURING PREGNANCY [None]
  - MYOCARDIAL INFARCTION [None]
  - PREGNANCY [None]
